FAERS Safety Report 17983327 (Version 1)
Quarter: 2020Q3

REPORT INFORMATION
  Report Type: Spontaneous
  Country: US (occurrence: US)
  Receive Date: 20200702
  Receipt Date: 20200702
  Transmission Date: 20201103
  Serious: No
  Sender: FDA-Public Use
  Company Number: None

PATIENT
  Age: 74 Year
  Sex: Male
  Weight: 58.06 kg

DRUGS (1)
  1. ALBUTEROL HFA 90MCG 90 MCG INH [Suspect]
     Active Substance: ALBUTEROL SULFATE
     Indication: CHRONIC OBSTRUCTIVE PULMONARY DISEASE
     Dosage: 2 INHALATION QID ORAL
     Route: 048
     Dates: start: 20200618, end: 20200629

REACTIONS (1)
  - Device malfunction [None]

NARRATIVE: CASE EVENT DATE: 20200629
